FAERS Safety Report 16305491 (Version 2)
Quarter: 2019Q2

REPORT INFORMATION
  Report Type: Spontaneous
  Country: US (occurrence: US)
  Receive Date: 20190513
  Receipt Date: 20190517
  Transmission Date: 20190711
  Serious: Yes (Other)
  Sender: FDA-Public Use
  Company Number: US-TEVA-2019-US-1048628

PATIENT
  Age: 74 Year
  Sex: Male

DRUGS (2)
  1. DILTIAZEM. [Suspect]
     Active Substance: DILTIAZEM
     Indication: ARRHYTHMIA
     Route: 065
  2. SOTALOL. [Suspect]
     Active Substance: SOTALOL
     Indication: ARRHYTHMIA
     Route: 065

REACTIONS (2)
  - Heart rate decreased [Unknown]
  - Drug ineffective [Unknown]
